FAERS Safety Report 19922956 (Version 11)
Quarter: 2021Q4

REPORT INFORMATION
  Report Type: Report from Study
  Country: CN (occurrence: None)
  Receive Date: 20211006
  Receipt Date: 20211201
  Transmission Date: 20220303
  Serious: Yes (Hospitalization)
  Sender: FDA-Public Use
  Company Number: CN-ROCHE-2915115

PATIENT
  Age: 63 Year
  Sex: Male
  Weight: 60 kg

DRUGS (36)
  1. ATEZOLIZUMAB [Suspect]
     Active Substance: ATEZOLIZUMAB
     Indication: Small cell lung cancer extensive stage
     Dosage: ON 10/SEP/2021, THE PATIENT RECEIVED THE MOST RECENT DOSE OF ATEZOLIZUMAB (1200 MG) PRIOR TO ONSET O
     Route: 041
     Dates: start: 20210910
  2. ATEZOLIZUMAB [Suspect]
     Active Substance: ATEZOLIZUMAB
     Dosage: THIRD CYCLE
     Route: 041
     Dates: start: 20211021
  3. BEVACIZUMAB [Suspect]
     Active Substance: BEVACIZUMAB
     Indication: Small cell lung cancer extensive stage
     Dosage: ON 10/SEP/2021 AND 21/OCT/2021 THE PATIENT RECEIVED THE MOST RECENT DOSE OF BEVACIZUMAB PRIOR TO ONS
     Route: 042
     Dates: start: 20210910
  4. BEVACIZUMAB [Suspect]
     Active Substance: BEVACIZUMAB
     Route: 042
     Dates: start: 20211021
  5. CARBOPLATIN [Suspect]
     Active Substance: CARBOPLATIN
     Indication: Small cell lung cancer extensive stage
     Dosage: ON 10/SEP/2021 AND 21/OCT/2021 THE PATIENT RECEIVED THE MOST RECENT DOSE OF CARBOPLATIN (497 MG) PRI
     Route: 042
     Dates: start: 20210910
  6. CARBOPLATIN [Suspect]
     Active Substance: CARBOPLATIN
     Route: 042
  7. ETOPOSIDE [Suspect]
     Active Substance: ETOPOSIDE
     Indication: Small cell lung cancer extensive stage
     Dosage: ON 12/SEP/2021 THE PATIENT RECEIVED THE MOST RECENT DOSE OF ETOPOSIDE (160 MG) PRIOR TO ONSET OF AE/
     Route: 042
     Dates: start: 20210910
  8. ETOPOSIDE [Suspect]
     Active Substance: ETOPOSIDE
     Dosage: D1-D3
     Route: 042
     Dates: start: 20211021, end: 20211023
  9. RAMOSETRON HYDROCHLORIDE [Concomitant]
     Active Substance: RAMOSETRON HYDROCHLORIDE
     Indication: Prophylaxis
     Route: 042
     Dates: start: 20210910, end: 20210912
  10. RAMOSETRON HYDROCHLORIDE [Concomitant]
     Active Substance: RAMOSETRON HYDROCHLORIDE
     Dates: start: 20210928, end: 20211001
  11. MANNITOL [Concomitant]
     Active Substance: MANNITOL
     Route: 042
     Dates: start: 20210910, end: 20210912
  12. BENZYDAMINE [Concomitant]
     Active Substance: BENZYDAMINE
     Route: 030
     Dates: start: 20210910, end: 20210910
  13. SODIUM BICARBONATE [Concomitant]
     Active Substance: SODIUM BICARBONATE
     Indication: Prophylaxis
     Route: 042
     Dates: start: 20210910, end: 20210912
  14. SODIUM BICARBONATE [Concomitant]
     Active Substance: SODIUM BICARBONATE
     Route: 042
     Dates: start: 20211021, end: 20211023
  15. SODIUM BICARBONATE [Concomitant]
     Active Substance: SODIUM BICARBONATE
     Route: 042
     Dates: start: 20210928, end: 20211001
  16. POTASSIUM CHLORIDE [Concomitant]
     Active Substance: POTASSIUM CHLORIDE
     Route: 042
     Dates: start: 20210928, end: 20211001
  17. POTASSIUM CHLORIDE [Concomitant]
     Active Substance: POTASSIUM CHLORIDE
     Route: 042
     Dates: start: 20211021, end: 20211023
  18. VITAMIN B6 [Concomitant]
     Active Substance: PYRIDOXINE HYDROCHLORIDE
     Indication: Prophylaxis
     Route: 042
     Dates: start: 20210928, end: 20211001
  19. VITAMIN B6 [Concomitant]
     Active Substance: PYRIDOXINE HYDROCHLORIDE
     Route: 042
     Dates: start: 20211021, end: 20211023
  20. VITAMIN B6 [Concomitant]
     Active Substance: PYRIDOXINE HYDROCHLORIDE
     Route: 042
     Dates: start: 20210910, end: 20210913
  21. CIMETIDINE [Concomitant]
     Active Substance: CIMETIDINE
     Indication: Prophylaxis
     Route: 042
     Dates: start: 20211021, end: 20211023
  22. CIMETIDINE [Concomitant]
     Active Substance: CIMETIDINE
     Route: 042
     Dates: start: 20210928, end: 20211001
  23. CIMETIDINE [Concomitant]
     Active Substance: CIMETIDINE
     Route: 042
     Dates: start: 20210910, end: 20210913
  24. DIPHENHYDRAMINE HYDROCHLORIDE [Concomitant]
     Active Substance: DIPHENHYDRAMINE HYDROCHLORIDE
     Route: 030
     Dates: start: 20210928, end: 20211001
  25. INSULIN NOS [Concomitant]
     Active Substance: INSULIN NOS
     Route: 042
     Dates: start: 20211021, end: 20211021
  26. CODEINE [Concomitant]
     Active Substance: CODEINE
     Indication: Cough
     Route: 048
     Dates: start: 20211022, end: 20211024
  27. LACTULOSE [Concomitant]
     Active Substance: LACTULOSE
     Route: 048
     Dates: start: 20210928, end: 20210928
  28. LACTULOSE [Concomitant]
     Active Substance: LACTULOSE
     Route: 048
     Dates: start: 20211022, end: 20211024
  29. FOSAPITAN [Concomitant]
     Route: 042
     Dates: start: 20210928, end: 20210928
  30. GLYCERIN [Concomitant]
     Active Substance: GLYCERIN
     Dates: start: 20211023
  31. BUNAMIODYL [Concomitant]
     Active Substance: BUNAMIODYL
  32. LICORICE [Concomitant]
     Active Substance: LICORICE
     Dosage: 3 TABLETS
     Route: 048
     Dates: start: 20211026
  33. SODIUM CHLORIDE [Concomitant]
     Active Substance: SODIUM CHLORIDE
     Route: 042
  34. DEXTROSE [Concomitant]
     Active Substance: DEXTROSE
     Dosage: INJECTION
     Route: 042
  35. SODIUM CYCLAMATE [Concomitant]
     Active Substance: SODIUM CYCLAMATE
     Route: 042
  36. FOSAPREPITANT DIMEGLUMINE [Concomitant]
     Active Substance: FOSAPREPITANT DIMEGLUMINE

REACTIONS (1)
  - Pulmonary haemorrhage [Not Recovered/Not Resolved]

NARRATIVE: CASE EVENT DATE: 20210917
